FAERS Safety Report 10228287 (Version 1)
Quarter: 2014Q2

REPORT INFORMATION
  Report Type: Spontaneous
  Country: US (occurrence: US)
  Receive Date: 20140610
  Receipt Date: 20140610
  Transmission Date: 20141212
  Serious: Yes (Life-Threatening, Hospitalization, Other)
  Sender: FDA-Public Use
  Company Number: US-PFIZER INC-2014150366

PATIENT
  Age: 58 Year
  Sex: Female
  Weight: 108.9 kg

DRUGS (41)
  1. PANTOPRAZOLE [Suspect]
     Dosage: UNK
     Route: 048
  2. IBUPROFEN [Suspect]
     Dosage: 200 MG, UNK
     Route: 065
     Dates: end: 20110924
  3. MORPHINE SULFATE [Suspect]
     Dosage: UNK (IMMEDIATE RELEASE)
     Route: 065
  4. MORPHINE SULFATE [Suspect]
     Dosage: 2 MG, AS NEEDED ((EVERY 2 HOURS AS NEEDED)
     Route: 042
  5. MORPHINE SULFATE [Suspect]
     Dosage: UNK
     Route: 042
  6. MORPHINE SULFATE [Suspect]
     Dosage: 30 MG, AS NEEDED ((EVERY 4 HOURS AS NEEDED)
     Route: 065
  7. MORPHINE SULFATE [Suspect]
     Dosage: UNK
     Route: 065
  8. MORPHINE SULFATE [Suspect]
     Dosage: 12.5 UG, 1X/DAY
     Route: 037
  9. MORPHINE SULFATE [Suspect]
     Dosage: 100 MG, 2X/DAY
     Route: 065
  10. NORVASC [Suspect]
     Dosage: 5 MG, 1X/DAY
  11. NORVASC [Suspect]
     Dosage: 10 MG, 1X/DAY
  12. NORVASC [Suspect]
     Dosage: UNK
  13. OXYCODONE [Suspect]
     Indication: PAIN
     Dosage: 30 MG, 1X/DAY
  14. DILANTIN [Suspect]
     Indication: NEURALGIA
     Dosage: 100MG OR 200 MG, TID
     Route: 065
  15. DILANTIN [Suspect]
     Dosage: UNK (INCREASED DOSING IN SLOW FASHION)
     Route: 065
  16. DIOVAN (VALSARTAN) [Suspect]
     Dosage: 320 MG, 1X/DAY
     Route: 048
     Dates: end: 20110928
  17. LIORESAL INTRATECAL [Suspect]
     Indication: PAIN
     Dosage: 2000UG/ML
     Route: 037
  18. METOCLOPRAMIDE HYDROCHLORIDE [Suspect]
     Dosage: UNK
     Route: 042
  19. VALSARTAN [Suspect]
     Dosage: UNK
     Route: 065
  20. PARACETAMOL [Suspect]
     Dosage: UNK
     Route: 065
  21. CLONAZEPAM [Suspect]
     Dosage: 2 MG, 1X/DAY (QHS)
  22. CLONIDINE HYDROCHLORIDE [Suspect]
     Dosage: 1 DF, 2X/DAY
     Route: 048
     Dates: end: 20110928
  23. CLONIDINE HYDROCHLORIDE [Suspect]
     Dosage: UNK
     Route: 037
  24. HYDROXYZINE [Suspect]
     Dosage: 25 MG, 3X/DAY
     Route: 065
  25. ENOXAPARIN [Suspect]
     Dosage: UNK
     Route: 042
  26. CARISOPRODOL [Suspect]
     Dosage: UNK
     Route: 065
  27. CARVEDILOL [Suspect]
  28. ORPHENADRINE [Suspect]
     Dosage: UNK
     Route: 065
  29. FUROSEMIDE [Suspect]
     Dosage: UNK
     Route: 065
  30. ATARAX [Suspect]
     Indication: TREMOR
     Dosage: 25 MG, AS NEEDED
  31. COREG [Suspect]
     Dosage: 25 MG, 2X/DAY
     Route: 048
     Dates: end: 20110928
  32. DILAUDID [Suspect]
     Dosage: 4 MG, EVERY 4 HRS
     Route: 048
  33. KLONOPIN [Suspect]
     Dosage: 2.5 MG, 2X/DAY
  34. KEFLEX [Suspect]
     Dosage: 500 MG, 4X/DAY
     Route: 065
  35. SOMA [Suspect]
     Dosage: 350 MG EVERY 6 HRS OR 1 EVERY 4 HRS
     Route: 065
  36. FENTANYL [Suspect]
     Indication: PAIN
     Dosage: 150 MCG/HR EVERY 72 HOURS
     Route: 062
  37. FENTANYL [Suspect]
     Dosage: 200 MCG/HR EVERY 72 HOURS
     Route: 062
  38. DURAGESIC [Suspect]
     Dosage: 200 ?G, Q72H
     Route: 065
  39. PHENYTOIN [Suspect]
     Dosage: UNK
     Route: 065
  40. PHENERGAN PEDIATRIC [Suspect]
     Dosage: 12.5 MG, AS NEEDED (EVERY 6 HOURS (PRN)
     Route: 065
  41. PHENERGAN PEDIATRIC [Suspect]
     Dosage: 25 MG, Q6HR AS NEEDED
     Route: 054

REACTIONS (88)
  - Intervertebral disc degeneration [Unknown]
  - Nuclear magnetic resonance imaging abnormal [Unknown]
  - Electrocardiogram abnormal [Unknown]
  - Tooth fracture [Unknown]
  - Post procedural haemorrhage [Unknown]
  - Foreign body reaction [Unknown]
  - Extradural abscess [Unknown]
  - Wound dehiscence [Unknown]
  - Purulent discharge [Unknown]
  - Urinary casts [Unknown]
  - Arthritis bacterial [Unknown]
  - Osteomyelitis [Unknown]
  - Contusion [Unknown]
  - Throat irritation [Unknown]
  - Hypertensive encephalopathy [Unknown]
  - Neuropathy peripheral [Recovering/Resolving]
  - Anxiety disorder [Unknown]
  - Left ventricular hypertrophy [Unknown]
  - Impaired gastric emptying [Unknown]
  - Lumbar spinal stenosis [Unknown]
  - Skin infection [Recovered/Resolved]
  - Influenza [Unknown]
  - Wound infection staphylococcal [Unknown]
  - Blood albumin decreased [Unknown]
  - Staphylococcus test positive [Unknown]
  - Red blood cell sedimentation rate increased [Unknown]
  - C-reactive protein increased [Unknown]
  - Blood calcium decreased [Unknown]
  - Blood glucose increased [Unknown]
  - Globulins increased [Unknown]
  - Hypokalaemia [Unknown]
  - Respiratory rate increased [Unknown]
  - Mean cell volume decreased [Unknown]
  - Blood potassium decreased [Unknown]
  - Urinary tract infection [Unknown]
  - Red blood cells urine positive [Unknown]
  - White blood cells urine positive [Recovered/Resolved]
  - Neutrophil count increased [Unknown]
  - Haemoglobin decreased [Unknown]
  - Hypovolaemia [Unknown]
  - Hyperpathia [Unknown]
  - Spinal osteoarthritis [Unknown]
  - Paralysis [Unknown]
  - Obesity [Unknown]
  - Haematocrit decreased [Unknown]
  - Myositis [Unknown]
  - Soft tissue infection [Not Recovered/Not Resolved]
  - Cellulitis [Unknown]
  - Allodynia [Unknown]
  - Cough [Unknown]
  - Heart rate increased [Unknown]
  - Anaemia [Unknown]
  - Feeling hot [Unknown]
  - Abasia [Unknown]
  - Dyspnoea [Unknown]
  - Hypertensive crisis [Unknown]
  - Hypoaesthesia [Unknown]
  - Tremor [Unknown]
  - Implant site hypersensitivity [Unknown]
  - Implant site discharge [Unknown]
  - Implant site pain [Not Recovered/Not Resolved]
  - Implant site extravasation [Unknown]
  - Implant site infection [Unknown]
  - Implant site abscess [Unknown]
  - Muscle spasms [Unknown]
  - Muscular weakness [Unknown]
  - Neuralgia [Not Recovered/Not Resolved]
  - Pain [Recovering/Resolving]
  - Hypertension [Recovering/Resolving]
  - Pain in extremity [Unknown]
  - Dehydration [Unknown]
  - Convulsion [Unknown]
  - Paraesthesia [Unknown]
  - Meningitis [Recovering/Resolving]
  - Back pain [Recovering/Resolving]
  - Implant site mass [Unknown]
  - Blood magnesium decreased [Unknown]
  - No therapeutic response [Unknown]
  - Hyponatraemia [Unknown]
  - Blood sodium decreased [Unknown]
  - Malaise [Unknown]
  - Pyrexia [Recovered/Resolved]
  - Insomnia [Unknown]
  - Headache [Unknown]
  - Asthenia [Unknown]
  - Nausea [Recovering/Resolving]
  - Vomiting [Unknown]
  - Dry mouth [Unknown]
